FAERS Safety Report 15406264 (Version 1)
Quarter: 2018Q3

REPORT INFORMATION
  Report Type: Spontaneous
  Country: US (occurrence: US)
  Receive Date: 20180918
  Receipt Date: 20180918
  Transmission Date: 20181010
  Serious: Yes (Disabling)
  Sender: FDA-Public Use
  Company Number: None

PATIENT
  Age: 81 Year
  Sex: Female
  Weight: 67.5 kg

DRUGS (1)
  1. PROLIA [Suspect]
     Active Substance: DENOSUMAB
     Indication: BONE DENSITY DECREASED
     Dosage: ?          QUANTITY:1 60 MG INJECTION;OTHER FREQUENCY:ONCE EVERY SIX MON;?
     Route: 058
     Dates: start: 20180817

REACTIONS (4)
  - Pruritus generalised [None]
  - Insomnia [None]
  - Drug ineffective [None]
  - Frustration tolerance decreased [None]

NARRATIVE: CASE EVENT DATE: 20180830
